FAERS Safety Report 4906395-4 (Version None)
Quarter: 2006Q1

REPORT INFORMATION
  Report Type: 
  Country: None (occurrence: None)
  Receive Date: 20060207
  Receipt Date: 20060119
  Transmission Date: 20060701
  Serious: Yes (Hospitalization)
  Sender: FDA-Public Use
  Company Number: IT200601001215

PATIENT
  Age: 2 Year
  Sex: Female
  Weight: 110 kg

DRUGS (1)
  1. CIALIS [Suspect]
     Indication: ACCIDENTAL DRUG INTAKE BY CHILD
     Dosage: 10 MG, OTHER, ORAL
     Route: 048
     Dates: start: 20060108, end: 20060108

REACTIONS (4)
  - ACCIDENTAL DRUG INTAKE BY CHILD [None]
  - ACCIDENTAL OVERDOSE [None]
  - HEART RATE DECREASED [None]
  - HYPOTENSION [None]
